FAERS Safety Report 6910587-2 (Version None)
Quarter: 2010Q3

REPORT INFORMATION
  Report Type: 
  Country: None (occurrence: None)
  Receive Date: 20100806
  Receipt Date: 20100802
  Transmission Date: 20110219
  Serious: Yes (Other)
  Sender: FDA-Public Use
  Company Number: US-PFIZER INC-2010098009

PATIENT
  Sex: Male

DRUGS (12)
  1. ARGATROBAN [Suspect]
     Indication: CONTINUOUS HAEMODIAFILTRATION
     Dosage: 10.4 ML, EVERY HR
     Route: 042
     Dates: start: 20071102, end: 20071104
  2. HEPARIN SODIUM [Suspect]
     Indication: AORTOGRAM
     Dosage: 10000
     Route: 065
     Dates: start: 20071101, end: 20071101
  3. HEPARIN SODIUM [Suspect]
     Indication: PERIPHERAL ARTERY ANGIOPLASTY
  4. HEPARIN SODIUM [Suspect]
     Indication: ARTERIAL STENT INSERTION
  5. HEPARIN SODIUM [Suspect]
     Indication: CONTINUOUS HAEMODIAFILTRATION
  6. NIFEDIPINE [Concomitant]
  7. FOSINOPRIL [Concomitant]
  8. ASPIRIN [Concomitant]
  9. COREG [Concomitant]
  10. DIGOXIN [Concomitant]
  11. NAPROXEN [Concomitant]
  12. PLAVIX [Concomitant]

REACTIONS (1)
  - UNRESPONSIVE TO STIMULI [None]
